FAERS Safety Report 5113800-X (Version None)
Quarter: 2006Q3

REPORT INFORMATION
  Report Type: 
  Country: None (occurrence: None)
  Receive Date: 20060920
  Receipt Date: 20060908
  Transmission Date: 20061208
  Serious: Yes (Hospitalization, Other)
  Sender: FDA-Public Use
  Company Number: 2006083446

PATIENT
  Age: 16 Year
  Sex: Female

DRUGS (1)
  1. GENOTROPIN [Suspect]
     Indication: PRADER-WILLI SYNDROME
     Dosage: SUBCUTANEOUS
     Route: 058
     Dates: start: 20050301

REACTIONS (2)
  - CARDIAC TAMPONADE [None]
  - SYSTEMIC LUPUS ERYTHEMATOSUS [None]
